FAERS Safety Report 5900434-X (Version None)
Quarter: 2008Q3

REPORT INFORMATION
  Report Type: 
  Country: None (occurrence: None)
  Receive Date: 20080926
  Receipt Date: 20080919
  Transmission Date: 20090109
  Serious: Yes (Other)
  Sender: FDA-Public Use
  Company Number: US-PFIZER INC-2008058597

PATIENT
  Age: 70 Year
  Sex: Female

DRUGS (4)
  1. CELEBREX [Suspect]
     Indication: FIBROMYALGIA
     Route: 048
     Dates: end: 19960101
  2. CELEBREX [Suspect]
     Indication: ARTHRITIS
  3. CELEBREX [Suspect]
     Indication: OSTEOARTHRITIS
  4. COUMADIN [Concomitant]

REACTIONS (1)
  - HEART RATE INCREASED [None]
